FAERS Safety Report 12059074 (Version 2)
Quarter: 2016Q1

REPORT INFORMATION
  Report Type: Report from Study
  Country: AR (occurrence: AR)
  Receive Date: 20160210
  Receipt Date: 20160218
  Transmission Date: 20160526
  Serious: Yes (Other)
  Sender: FDA-Public Use
  Company Number: PHHY2016AR014825

PATIENT
  Sex: Female

DRUGS (4)
  1. EXFORGE [Suspect]
     Active Substance: AMLODIPINE BESYLATE\VALSARTAN
     Indication: CARDIAC DISORDER
  2. DIOVAN D [Suspect]
     Active Substance: HYDROCHLOROTHIAZIDE\VALSARTAN
     Indication: PRODUCT USED FOR UNKNOWN INDICATION
     Dosage: 1 DF (80/12.5 MG), UNK
     Route: 065
  3. EXFORGE [Suspect]
     Active Substance: AMLODIPINE BESYLATE\VALSARTAN
     Indication: HYPERTENSION
     Dosage: 1 DF, QD (5/160, UNITS NOT PROVIDED)
     Route: 065
  4. DIOVAN D [Suspect]
     Active Substance: HYDROCHLOROTHIAZIDE\VALSARTAN
     Dosage: 1 DF (320/25 MG), UNK
     Route: 065

REACTIONS (11)
  - Fear [Unknown]
  - Peripheral swelling [Not Recovered/Not Resolved]
  - Varicose vein [Unknown]
  - Discomfort [Not Recovered/Not Resolved]
  - Abdominal pain upper [Unknown]
  - Malaise [Not Recovered/Not Resolved]
  - Fatigue [Unknown]
  - Depressed mood [Not Recovered/Not Resolved]
  - Anxiety [Unknown]
  - Muscular weakness [Unknown]
  - Joint swelling [Not Recovered/Not Resolved]
